FAERS Safety Report 24414868 (Version 1)
Quarter: 2024Q4

REPORT INFORMATION
  Report Type: Report from Study
  Country: GR (occurrence: GR)
  Receive Date: 20241009
  Receipt Date: 20241009
  Transmission Date: 20250115
  Serious: Yes (Hospitalization, Other)
  Sender: TAKEDA
  Company Number: GR-TAKEDA-2024TUS087635

PATIENT
  Age: 37 Year
  Sex: Male

DRUGS (7)
  1. HUMAN IMMUNOGLOBULIN G\HYALURONIDASE RECOMBINANT HUMAN [Suspect]
     Active Substance: HUMAN IMMUNOGLOBULIN G\HYALURONIDASE (HUMAN RECOMBINANT)
     Indication: Plasma cell myeloma
     Dosage: 400 MILLILITER, 2/MONTH
     Route: 058
     Dates: start: 20240329
  2. HUMAN IMMUNOGLOBULIN G\HYALURONIDASE RECOMBINANT HUMAN [Suspect]
     Active Substance: HUMAN IMMUNOGLOBULIN G\HYALURONIDASE (HUMAN RECOMBINANT)
     Dosage: UNK
     Route: 050
     Dates: start: 202403
  3. .DELTA.9-TETRAHYDROCANNABINOL\CANNABIDIOL\HERBALS [Suspect]
     Active Substance: .DELTA.9-TETRAHYDROCANNABINOL\CANNABIDIOL\HERBALS
     Indication: Product used for unknown indication
     Dosage: UNK
     Route: 065
  4. LAMICTAL [Concomitant]
     Active Substance: LAMOTRIGINE
     Indication: Epilepsy
     Dosage: 400 MILLIGRAM
     Route: 065
  5. BRIVIACT [Concomitant]
     Active Substance: BRIVARACETAM
     Indication: Epilepsy
     Dosage: 50 MILLIGRAM, QD
     Route: 065
  6. CENOBAMATE [Concomitant]
     Active Substance: CENOBAMATE
     Indication: Epilepsy
     Dosage: 37.5 MILLIGRAM, QD
     Route: 065
  7. CLOBAZAM [Concomitant]
     Active Substance: CLOBAZAM
     Indication: Epilepsy
     Dosage: 30 MILLIGRAM, QD
     Route: 065

REACTIONS (4)
  - Coma [Recovered/Resolved]
  - Epilepsy [Recovered/Resolved]
  - Penile swelling [Recovered/Resolved]
  - Administration site pain [Recovered/Resolved]

NARRATIVE: CASE EVENT DATE: 20240801
